FAERS Safety Report 13856949 (Version 1)
Quarter: 2017Q3

REPORT INFORMATION
  Report Type: Spontaneous
  Country: US (occurrence: US)
  Receive Date: 20170810
  Receipt Date: 20170810
  Transmission Date: 20171127
  Serious: No
  Sender: FDA-Public Use
  Company Number: US-ROCHE-1185870

PATIENT

DRUGS (1)
  1. TAMIFLU [Suspect]
     Active Substance: OSELTAMIVIR PHOSPHATE
     Indication: INFLUENZA
     Route: 065

REACTIONS (13)
  - Dizziness [Unknown]
  - Depression [Unknown]
  - Nausea [Unknown]
  - Skin exfoliation [Unknown]
  - Tremor [Unknown]
  - Diarrhoea [Unknown]
  - Insomnia [Unknown]
  - Negative thoughts [Unknown]
  - Confusional state [Unknown]
  - Heart rate increased [Unknown]
  - Depressed mood [Unknown]
  - Crying [Unknown]
  - Fear [Unknown]
